FAERS Safety Report 9934242 (Version 2)
Quarter: 2014Q2

REPORT INFORMATION
  Report Type: Report from Study
  Country: IT (occurrence: IT)
  Receive Date: 20140228
  Receipt Date: 20140411
  Transmission Date: 20141212
  Serious: Yes (Other)
  Sender: FDA-Public Use
  Company Number: IT-CELGENEUS-083-21880-14022279

PATIENT
  Age: 72 Year
  Sex: Male
  Weight: 83.5 kg

DRUGS (9)
  1. REVLIMID [Suspect]
     Indication: AMYLOIDOSIS
     Dosage: 10 MILLIGRAM
     Route: 048
     Dates: start: 20131009, end: 20131018
  2. DEXAMETHASONE [Suspect]
     Indication: AMYLOIDOSIS
     Route: 048
     Dates: start: 20131009, end: 20131016
  3. DEXAMETHASONE [Suspect]
     Route: 048
  4. DEXAMETHASONE [Suspect]
     Route: 065
     Dates: start: 200806
  5. DEXAMETHASONE [Suspect]
     Route: 065
     Dates: start: 201105, end: 201305
  6. VALSARTAN + HIDROCLOROTIAZIDA [Concomitant]
     Indication: HYPERTENSION
     Dosage: 80 + 12.5
     Route: 065
  7. OMEPRAZOLE [Concomitant]
     Indication: PROPHYLAXIS AGAINST GASTROINTESTINAL ULCER
     Route: 065
  8. ACETYLSALICYLIC ACID [Concomitant]
     Indication: ANTIPLATELET THERAPY
     Route: 065
  9. ALLOPURINOL [Interacting]
     Indication: HYPERURICAEMIA
     Dosage: 150 MILLIGRAM
     Route: 065

REACTIONS (1)
  - Prostate cancer [Not Recovered/Not Resolved]
